FAERS Safety Report 6713071-4 (Version None)
Quarter: 2010Q2

REPORT INFORMATION
  Report Type: 
  Country: None (occurrence: None)
  Receive Date: 20100504
  Receipt Date: 20100421
  Transmission Date: 20101027
  Serious: Yes (Life-Threatening, Hospitalization)
  Sender: FDA-Public Use
  Company Number: 2009SP025268

PATIENT
  Age: 4 Year
  Sex: Male
  Weight: 14 kg

DRUGS (33)
  1. ROCURONIUM BROMIDE [Suspect]
     Indication: NEUROMUSCULAR BLOCKING THERAPY
     Dosage: SEE IMAGE
     Route: 042
     Dates: start: 20090317, end: 20090317
  2. ROCURONIUM BROMIDE [Suspect]
     Indication: NEUROMUSCULAR BLOCKING THERAPY
     Dosage: SEE IMAGE
     Route: 042
     Dates: start: 20090317, end: 20090317
  3. ROCURONIUM BROMIDE [Suspect]
     Indication: NEUROMUSCULAR BLOCKING THERAPY
     Dosage: SEE IMAGE
     Route: 042
     Dates: start: 20090317, end: 20090317
  4. ROCURONIUM BROMIDE [Suspect]
     Indication: NEUROMUSCULAR BLOCKING THERAPY
     Dosage: SEE IMAGE
     Route: 042
     Dates: start: 20090317, end: 20090317
  5. ROCURONIUM BROMIDE [Suspect]
     Indication: NEUROMUSCULAR BLOCKING THERAPY
     Dosage: SEE IMAGE
     Route: 042
     Dates: start: 20090317, end: 20090317
  6. ROCURONIUM BROMIDE [Suspect]
     Indication: NEUROMUSCULAR BLOCKING THERAPY
     Dosage: SEE IMAGE
     Route: 042
     Dates: start: 20090317, end: 20090317
  7. ROCURONIUM BROMIDE [Suspect]
     Indication: NEUROMUSCULAR BLOCKING THERAPY
     Dosage: SEE IMAGE
     Route: 042
     Dates: start: 20090317, end: 20090317
  8. ROCURONIUM BROMIDE [Suspect]
     Indication: NEUROMUSCULAR BLOCKING THERAPY
     Dosage: SEE IMAGE
     Route: 042
     Dates: start: 20090317, end: 20090317
  9. ROCURONIUM BROMIDE [Suspect]
     Indication: NEUROMUSCULAR BLOCKING THERAPY
     Dosage: SEE IMAGE
     Route: 042
     Dates: start: 20090317, end: 20090317
  10. ROCURONIUM BROMIDE [Suspect]
     Indication: NEUROMUSCULAR BLOCKING THERAPY
     Dosage: SEE IMAGE
     Route: 042
     Dates: start: 20090317, end: 20090317
  11. ROCURONIUM BROMIDE [Suspect]
     Indication: NEUROMUSCULAR BLOCKING THERAPY
     Dosage: SEE IMAGE
     Route: 042
     Dates: start: 20090317, end: 20090317
  12. ROCURONIUM BROMIDE [Suspect]
     Indication: NEUROMUSCULAR BLOCKING THERAPY
     Dosage: SEE IMAGE
     Route: 042
     Dates: start: 20090317, end: 20090317
  13. ROCURONIUM BROMIDE [Suspect]
     Indication: NEUROMUSCULAR BLOCKING THERAPY
     Dosage: SEE IMAGE
     Route: 042
     Dates: start: 20090317, end: 20090317
  14. ROCURONIUM BROMIDE [Suspect]
     Indication: NEUROMUSCULAR BLOCKING THERAPY
     Dosage: SEE IMAGE
     Route: 042
     Dates: start: 20090317, end: 20090317
  15. ROCURONIUM BROMIDE [Suspect]
     Indication: NEUROMUSCULAR BLOCKING THERAPY
     Dosage: SEE IMAGE
     Route: 042
     Dates: start: 20090317, end: 20090317
  16. ROCURONIUM BROMIDE [Suspect]
     Indication: NEUROMUSCULAR BLOCKING THERAPY
     Dosage: SEE IMAGE
     Route: 042
     Dates: start: 20090317, end: 20090317
  17. ROCURONIUM BROMIDE [Suspect]
     Indication: NEUROMUSCULAR BLOCKING THERAPY
     Dosage: SEE IMAGE
     Route: 042
     Dates: start: 20090318, end: 20090318
  18. ROCURONIUM BROMIDE [Suspect]
     Indication: NEUROMUSCULAR BLOCKING THERAPY
     Dosage: SEE IMAGE
     Route: 042
     Dates: start: 20090318, end: 20090318
  19. ROCURONIUM BROMIDE [Suspect]
     Indication: NEUROMUSCULAR BLOCKING THERAPY
     Dosage: SEE IMAGE
     Route: 042
     Dates: start: 20090318, end: 20090318
  20. ROCURONIUM BROMIDE [Suspect]
     Indication: NEUROMUSCULAR BLOCKING THERAPY
     Dosage: SEE IMAGE
     Route: 042
     Dates: start: 20090319, end: 20090319
  21. ROCURONIUM BROMIDE [Suspect]
     Indication: NEUROMUSCULAR BLOCKING THERAPY
     Dosage: SEE IMAGE
     Route: 042
     Dates: start: 20090319, end: 20090319
  22. ROCURONIUM BROMIDE [Suspect]
     Indication: NEUROMUSCULAR BLOCKING THERAPY
     Dosage: SEE IMAGE
     Route: 042
     Dates: start: 20090320, end: 20090320
  23. ROCURONIUM BROMIDE [Suspect]
     Indication: NEUROMUSCULAR BLOCKING THERAPY
     Dosage: SEE IMAGE
     Route: 042
     Dates: start: 20090320, end: 20090320
  24. ROCURONIUM BROMIDE [Suspect]
     Dosage: 0.6 MG;QD;INDRP ; 0.6 MG;QH;INDRP
     Route: 041
     Dates: start: 20090318, end: 20090318
  25. ROCURONIUM BROMIDE [Suspect]
     Dosage: 0.6 MG;QD;INDRP ; 0.6 MG;QH;INDRP
     Route: 041
     Dates: start: 20090320, end: 20090320
  26. SEVOFLURANE [Suspect]
     Indication: GENERAL ANAESTHESIA
     Dosage: INH
     Route: 055
     Dates: start: 20090317, end: 20090318
  27. KETAMINE HCL [Suspect]
     Indication: GENERAL ANAESTHESIA
     Dosage: 5 MG;IV
     Route: 042
     Dates: start: 20090317, end: 20090317
  28. PROPOFOL [Suspect]
     Indication: GENERAL ANAESTHESIA
     Dosage: 100 ML;IV
     Route: 042
     Dates: start: 20090317, end: 20090317
  29. FAMOTIDINE [Suspect]
     Dosage: 20 MG;IV
     Route: 042
     Dates: start: 20090318, end: 20090321
  30. DORMICUM [Concomitant]
  31. FENTANYL [Concomitant]
  32. CALCICOL [Concomitant]
  33. LASIX [Concomitant]

REACTIONS (6)
  - HAEMODYNAMIC INSTABILITY [None]
  - HYPERTHERMIA MALIGNANT [None]
  - PERITONEAL DIALYSIS [None]
  - RHABDOMYOLYSIS [None]
  - RIGHT VENTRICULAR FAILURE [None]
  - WEANING FAILURE [None]
